FAERS Safety Report 11203872 (Version 5)
Quarter: 2016Q2

REPORT INFORMATION
  Report Type: Spontaneous
  Country: US (occurrence: US)
  Receive Date: 20150619
  Receipt Date: 20160629
  Transmission Date: 20160815
  Serious: Yes (Hospitalization, Other)
  Sender: FDA-Public Use
  Company Number: US-GLAXOSMITHKLINE INC.-US2015GSK086195

PATIENT
  Age: 56 Year
  Sex: Male

DRUGS (3)
  1. LAMICTAL [Suspect]
     Active Substance: LAMOTRIGINE
     Indication: SEIZURE
     Dosage: 100 MG, UNK
     Dates: start: 200506
  2. LAMICTAL XR [Suspect]
     Active Substance: LAMOTRIGINE
     Indication: PRODUCT USED FOR UNKNOWN INDICATION
     Dosage: 100 MG, UNK
  3. PAROXETINE. [Suspect]
     Active Substance: PAROXETINE
     Indication: PRODUCT USED FOR UNKNOWN INDICATION
     Dosage: 20 MG, UNK

REACTIONS (12)
  - Urticaria [Unknown]
  - Cerebrovascular accident [Unknown]
  - Seizure [Unknown]
  - Spinal column injury [Unknown]
  - Aphasia [Unknown]
  - Amnesia [Unknown]
  - Hospitalisation [Unknown]
  - Coma [Recovered/Resolved]
  - Thrombosis [Unknown]
  - Drug intolerance [Unknown]
  - Abasia [Unknown]
  - Fall [Unknown]

NARRATIVE: CASE EVENT DATE: 201502
